FAERS Safety Report 4493332-2 (Version None)
Quarter: 2004Q4

REPORT INFORMATION
  Report Type: 
  Country: None (occurrence: None)
  Receive Date: 20041102
  Receipt Date: 20041021
  Transmission Date: 20050328
  Serious: Yes (Other)
  Sender: FDA-Public Use
  Company Number: 2004074224

PATIENT
  Sex: Male

DRUGS (2)
  1. DIFLUCAN [Suspect]
     Indication: CANDIDIASIS
     Dates: start: 20040928, end: 20040930
  2. ASPIRIN [Suspect]
     Indication: ILL-DEFINED DISORDER
     Dates: start: 20040901

REACTIONS (2)
  - ANGIONEUROTIC OEDEMA [None]
  - RASH GENERALISED [None]
